FAERS Safety Report 12486546 (Version 1)
Quarter: 2016Q2

REPORT INFORMATION
  Report Type: Report from Study
  Country: US (occurrence: US)
  Receive Date: 20160621
  Receipt Date: 20160621
  Transmission Date: 20160815
  Serious: Yes (Hospitalization, Other)
  Sender: FDA-Public Use
  Company Number: US-GILEAD-2016-0217242

PATIENT
  Age: 50 Year
  Sex: Female
  Weight: 86.17 kg

DRUGS (10)
  1. RISPERDAL [Concomitant]
     Active Substance: RISPERIDONE
     Dosage: 3 MG, BID
  2. EPIVIR [Concomitant]
     Active Substance: LAMIVUDINE
     Dosage: 300 MG, QD
  3. TRAZODONE [Concomitant]
     Active Substance: TRAZODONE HYDROCHLORIDE
     Dosage: 100 MG, QHS
  4. TENOFOVIR DISOPROXIL FUMARATE. [Suspect]
     Active Substance: TENOFOVIR DISOPROXIL FUMARATE
     Indication: HIV INFECTION
     Dosage: 300 MG, QD
     Route: 048
  5. REYATAZ [Concomitant]
     Active Substance: ATAZANAVIR SULFATE
     Dosage: 300 MG, QD
  6. ARTANE [Concomitant]
     Active Substance: TRIHEXYPHENIDYL HYDROCHLORIDE
     Indication: PROPHYLAXIS
     Dosage: 2 MG, QD
  7. NORVIR [Concomitant]
     Active Substance: RITONAVIR
     Dosage: 100 MG, QD
  8. MULTIVITAMIN                       /00097801/ [Concomitant]
     Active Substance: VITAMINS
     Dosage: 1 DF, QD
  9. HALDOL [Concomitant]
     Active Substance: HALOPERIDOL
     Dosage: 20 MG, BID
  10. COLACE [Concomitant]
     Active Substance: DOCUSATE SODIUM

REACTIONS (1)
  - Schizophrenia [Unknown]

NARRATIVE: CASE EVENT DATE: 20151020
